FAERS Safety Report 5077938-8 (Version None)
Quarter: 2006Q3

REPORT INFORMATION
  Report Type: 
  Country: None (occurrence: None)
  Receive Date: 20060808
  Receipt Date: 20060731
  Transmission Date: 20061208
  Serious: Yes (Life-Threatening, Hospitalization)
  Sender: FDA-Public Use
  Company Number: DEWYE762822JUN06

PATIENT
  Age: 59 Year
  Sex: Male

DRUGS (2)
  1. VENLAFAXINE HCL [Suspect]
     Indication: DEPRESSION
     Dosage: 75 MG 1X PER 1 DAY, ORAL
     Route: 048
     Dates: start: 20060101, end: 20060601
  2. MIRTAZAPINE [Concomitant]

REACTIONS (3)
  - CARDIOMYOPATHY [None]
  - SEXUAL DYSFUNCTION [None]
  - VENTRICULAR ARRHYTHMIA [None]
